FAERS Safety Report 15500644 (Version 2)
Quarter: 2018Q4

REPORT INFORMATION
  Report Type: Report from Study
  Country: GT (occurrence: GT)
  Receive Date: 20181015
  Receipt Date: 20181030
  Transmission Date: 20190205
  Serious: Yes (Other)
  Sender: FDA-Public Use
  Company Number: PHHY2018GT125550

PATIENT
  Age: 48 Year
  Sex: Female
  Weight: 105.76 kg

DRUGS (2)
  1. EXFORGE [Suspect]
     Active Substance: AMLODIPINE BESYLATE\VALSARTAN
     Indication: HYPERTENSION
     Dosage: 1 DF, QD (AMLODIPINE 5MG, VALSARTAN 320MG)
     Route: 065
     Dates: start: 20180925
  2. NATRILIX - SLOW RELEASE [Concomitant]
     Active Substance: INDAPAMIDE
     Indication: PRODUCT USED FOR UNKNOWN INDICATION
     Dosage: 1 DF, QD (BEFORE BREAKFAST)
     Route: 065
     Dates: start: 20180925

REACTIONS (3)
  - Invasive ductal breast carcinoma [Recovering/Resolving]
  - Speech disorder [Unknown]
  - Pain [Unknown]

NARRATIVE: CASE EVENT DATE: 20181008
